FAERS Safety Report 4758721-7 (Version None)
Quarter: 2005Q3

REPORT INFORMATION
  Report Type: 
  Country: None (occurrence: None)
  Receive Date: 20050826
  Receipt Date: 20050809
  Transmission Date: 20060218
  Serious: Yes (Hospitalization, Other)
  Sender: FDA-Public Use
  Company Number: 2005-01707

PATIENT
  Age: 72 Year
  Sex: Male

DRUGS (3)
  1. INTEGRILIN [Suspect]
  2. PLAVIX [Concomitant]
  3. ASPIRIN [Concomitant]

REACTIONS (2)
  - RASH [None]
  - THROMBOCYTOPENIA [None]
